FAERS Safety Report 19921654 (Version 1)
Quarter: 2021Q4

REPORT INFORMATION
  Report Type: Spontaneous
  Country: CO (occurrence: CO)
  Receive Date: 20211003
  Receipt Date: 20211003
  Transmission Date: 20220303
  Serious: Yes (Other)
  Sender: FDA-Public Use
  Company Number: None

PATIENT
  Age: 8 Year
  Sex: Female
  Weight: 27 kg

DRUGS (2)
  1. LACOSAMIDE [Suspect]
     Active Substance: LACOSAMIDE
     Indication: Tic
     Dosage: ?          QUANTITY:5 DF DOSAGE FORM;
     Route: 048
     Dates: start: 20210728, end: 20210819
  2. LEVETIRACETAM [Concomitant]
     Active Substance: LEVETIRACETAM

REACTIONS (5)
  - Vomiting [None]
  - Depression [None]
  - Fatigue [None]
  - Insomnia [None]
  - Loss of personal independence in daily activities [None]

NARRATIVE: CASE EVENT DATE: 20210808
